FAERS Safety Report 8969800 (Version 3)
Quarter: 2013Q1

REPORT INFORMATION
  Report Type: Spontaneous
  Country: CA (occurrence: CA)
  Receive Date: 20121218
  Receipt Date: 20130201
  Transmission Date: 20140127
  Serious: Yes (Other)
  Sender: FDA-Public Use
  Company Number: CA-AMGEN-CANSP2012080803

PATIENT
  Age: 58 Year
  Sex: Female

DRUGS (6)
  1. ENBREL [Suspect]
     Indication: RHEUMATOID ARTHRITIS
     Dosage: 50 MG, QWK
     Route: 058
     Dates: start: 200406, end: 201206
  2. METHOTREXATE [Concomitant]
     Dosage: UNK
  3. BACLOFEN [Concomitant]
     Dosage: UNK
  4. LEVOTHYROXIN [Concomitant]
     Dosage: UNK
  5. ELAVIL                             /00002202/ [Concomitant]
     Dosage: UNK
  6. HYDROCHLOROTHIAZIDE [Concomitant]
     Dosage: UNK

REACTIONS (3)
  - Bladder cancer recurrent [Not Recovered/Not Resolved]
  - Shock [Unknown]
  - Fungal sepsis [Unknown]
